FAERS Safety Report 5675342-2 (Version None)
Quarter: 2008Q1

REPORT INFORMATION
  Report Type: 
  Country: None (occurrence: None)
  Receive Date: 20080320
  Receipt Date: 20080318
  Transmission Date: 20080703
  Serious: Yes (Other)
  Sender: FDA-Public Use
  Company Number: US-BOEHRINGER INGELHEIM GMBH, GERMANY-2008-BP-02072BP

PATIENT
  Sex: Male

DRUGS (4)
  1. VIRAMUNE [Suspect]
     Indication: HIV INFECTION
     Route: 048
     Dates: start: 20071217, end: 20080114
  2. EPZICOM [Suspect]
     Indication: HIV INFECTION
     Route: 048
     Dates: start: 20071227, end: 20080110
  3. ZOLPIDEM [Concomitant]
  4. BLOOD PRESSURE MEDICINE [Concomitant]
     Indication: HYPERTENSION

REACTIONS (7)
  - ALANINE AMINOTRANSFERASE INCREASED [None]
  - ASPARTATE AMINOTRANSFERASE INCREASED [None]
  - CHILLS [None]
  - INFLUENZA LIKE ILLNESS [None]
  - MALAISE [None]
  - PYREXIA [None]
  - RASH MACULO-PAPULAR [None]
